FAERS Safety Report 11715442 (Version 2)
Quarter: 2015Q4

REPORT INFORMATION
  Report Type: Spontaneous
  Country: US (occurrence: US)
  Receive Date: 20151104
  Receipt Date: 20151110
  Transmission Date: 20160304
  Serious: No
  Sender: FDA-Public Use
  Company Number: US-ELI_LILLY_AND_COMPANY-US201103005834

PATIENT
  Age: 66 Year
  Sex: Female

DRUGS (4)
  1. FORTEO [Suspect]
     Active Substance: TERIPARATIDE
     Indication: OSTEOPOROSIS
     Dosage: 20 UG, QOD
     Route: 065
     Dates: start: 20110302
  2. HUMIRA [Concomitant]
     Active Substance: ADALIMUMAB
     Dosage: UNK, 2/M
  3. FORTEO [Suspect]
     Active Substance: TERIPARATIDE
     Dosage: 20 UG, QD
     Route: 065
  4. FORTEO [Suspect]
     Active Substance: TERIPARATIDE
     Dosage: 20 UG, QD
     Route: 065

REACTIONS (7)
  - Rheumatoid arthritis [Unknown]
  - Injection site bruising [Not Recovered/Not Resolved]
  - Arthralgia [Unknown]
  - Contusion [Unknown]
  - Musculoskeletal pain [Unknown]
  - Pain [Unknown]
  - Shoulder arthroplasty [Recovering/Resolving]

NARRATIVE: CASE EVENT DATE: 201103
